FAERS Safety Report 4652847-4 (Version None)
Quarter: 2005Q2

REPORT INFORMATION
  Report Type: 
  Country: None (occurrence: None)
  Receive Date: 20050502
  Receipt Date: 20050413
  Transmission Date: 20051028
  Serious: Yes (Hospitalization)
  Sender: FDA-Public Use
  Company Number: ENT 2005-0044

PATIENT
  Age: 77 Year
  Sex: Female

DRUGS (1)
  1. COMTAN [Suspect]
     Indication: PARKINSON'S DISEASE
     Dosage: 600 MG, ORAL
     Route: 048
     Dates: start: 20040602, end: 20040819

REACTIONS (2)
  - CARDIAC DISORDER [None]
  - CEREBRAL INFARCTION [None]
